FAERS Safety Report 4628098-6 (Version None)
Quarter: 2005Q2

REPORT INFORMATION
  Report Type: 
  Country: None (occurrence: None)
  Receive Date: 20050406
  Receipt Date: 20050309
  Transmission Date: 20051028
  Serious: Yes (Hospitalization, Other)
  Sender: FDA-Public Use
  Company Number: US-GLAXOSMITHKLINE-A0549235A

PATIENT
  Age: 47 Year
  Sex: Male
  Weight: 94.1 kg

DRUGS (7)
  1. WELLBUTRIN XL [Suspect]
     Dosage: 450MG PER DAY
     Route: 048
     Dates: start: 20031107, end: 20041107
  2. LAMICTAL [Concomitant]
     Indication: BIPOLAR DISORDER
     Dosage: 200MG PER DAY
     Route: 048
     Dates: start: 20031107
  3. AMBIEN [Concomitant]
     Indication: INSOMNIA
     Dosage: 15MG PER DAY
     Route: 048
     Dates: start: 20031010
  4. XANAX [Concomitant]
     Indication: ANXIETY
     Dosage: .5MG PER DAY
     Route: 048
     Dates: start: 20040826
  5. ZYPREXA [Concomitant]
     Indication: BIPOLAR DISORDER
     Dosage: 5MG PER DAY
     Route: 048
     Dates: start: 20040826
  6. PAXIL [Concomitant]
     Dosage: 60MG PER DAY
     Route: 048
     Dates: start: 20041004
  7. STRATTERA [Concomitant]
     Indication: ATTENTION DEFICIT/HYPERACTIVITY DISORDER
     Dosage: 40MG PER DAY
     Route: 048
     Dates: start: 20030819, end: 20040303

REACTIONS (5)
  - AMNESIA [None]
  - CONVULSION [None]
  - HUMERUS FRACTURE [None]
  - LOSS OF CONSCIOUSNESS [None]
  - TONGUE BITING [None]
